FAERS Safety Report 9165200 (Version 4)
Quarter: 2013Q2

REPORT INFORMATION
  Report Type: Report from Study
  Country: JP (occurrence: JP)
  Receive Date: 20130315
  Receipt Date: 20130424
  Transmission Date: 20140414
  Serious: Yes (Other)
  Sender: FDA-Public Use
  Company Number: JP-ASTELLAS-2013JP003841

PATIENT
  Age: 78 Year
  Sex: Female

DRUGS (9)
  1. SOLIFENACIN [Suspect]
     Indication: HYPERTONIC BLADDER
     Dosage: 5 MG, UID/QD
     Route: 048
     Dates: start: 20121012
  2. MIRABEGRON [Suspect]
     Indication: HYPERTONIC BLADDER
     Dosage: 25 MG, UID/QD
     Route: 048
     Dates: start: 20121123
  3. TAKEPRON [Concomitant]
     Indication: GASTROOESOPHAGEAL REFLUX DISEASE
     Dosage: 15 MG, UID/QD
     Route: 048
  4. XYZAL [Concomitant]
     Indication: RHINITIS ALLERGIC
     Dosage: 5 MG, UID/QD
     Route: 048
  5. MAGLAX [Concomitant]
     Indication: CONSTIPATION
     Dosage: 660 MG, UNKNOWN/D
     Route: 048
     Dates: start: 20121108
  6. NASONEX [Concomitant]
     Indication: RHINITIS ALLERGIC
     Dosage: 100 UG, UNKNOWN/D
     Route: 045
  7. PATANOL [Concomitant]
     Indication: CONJUNCTIVITIS ALLERGIC
     Dosage: UNK
     Route: 047
  8. INFREE [Concomitant]
     Indication: OSTEOARTHRITIS
     Dosage: 400 MG, UNKNOWN/D
     Route: 048
     Dates: start: 20121204, end: 20121211
  9. MUCOSTA [Concomitant]
     Indication: GASTRITIS PROPHYLAXIS
     Dosage: 200 MG, UNKNOWN/D
     Route: 048
     Dates: start: 20121204, end: 20121211

REACTIONS (2)
  - Osteoarthritis [Recovered/Resolved]
  - Herpes zoster [Recovered/Resolved]
